FAERS Safety Report 13770067 (Version 1)
Quarter: 2017Q3

REPORT INFORMATION
  Report Type: Spontaneous
  Country: US (occurrence: US)
  Receive Date: 20170719
  Receipt Date: 20170719
  Transmission Date: 20171127
  Serious: Yes (Other)
  Sender: FDA-Public Use
  Company Number: None

PATIENT
  Age: 57 Year
  Sex: Female

DRUGS (2)
  1. PENNSAID [Suspect]
     Active Substance: DICLOFENAC SODIUM
     Indication: INFLAMMATION
     Dosage: 1 1/2 GRAMS 2 PUMPS 2X^S DAY TOPICALLY
     Route: 061
  2. PENNSAID [Suspect]
     Active Substance: DICLOFENAC SODIUM
     Indication: PAIN
     Dosage: 1 1/2 GRAMS 2 PUMPS 2X^S DAY TOPICALLY
     Route: 061

REACTIONS (1)
  - Application site exfoliation [None]

NARRATIVE: CASE EVENT DATE: 20170706
